FAERS Safety Report 6395100-3 (Version None)
Quarter: 2009Q4

REPORT INFORMATION
  Report Type: 
  Country: None (occurrence: None)
  Receive Date: 20091009
  Receipt Date: 20091005
  Transmission Date: 20100525
  Serious: Yes (Death, Life-Threatening, Hospitalization)
  Sender: FDA-Public Use
  Company Number: DK-ASTRAZENECA-2009SE18334

PATIENT
  Sex: Female
  Weight: 58 kg

DRUGS (7)
  1. CRESTOR [Suspect]
     Indication: HYPERCHOLESTEROLAEMIA
     Route: 048
     Dates: start: 20051211
  2. METOPROLOLSUCCINAT [Concomitant]
     Indication: HYPERTENSION
     Dates: start: 20050101
  3. LISINOPRIL [Concomitant]
     Indication: HYPERTENSION
     Dates: start: 20050101
  4. ESOMEPRAZOLE MAGNESIUM [Concomitant]
     Dates: start: 20050101
  5. AMLODIPINE [Concomitant]
     Dates: start: 20050101
  6. HJERDYL [Concomitant]
     Indication: ANTICOAGULANT THERAPY
     Route: 048
     Dates: start: 20050101
  7. APOZEPAM [Concomitant]
     Indication: SEDATIVE THERAPY
     Route: 048
     Dates: start: 20050101

REACTIONS (1)
  - PANCREATITIS [None]
